FAERS Safety Report 12513091 (Version 3)
Quarter: 2016Q3

REPORT INFORMATION
  Report Type: Spontaneous
  Country: US (occurrence: US)
  Receive Date: 20160630
  Receipt Date: 20160803
  Transmission Date: 20161109
  Serious: No
  Sender: FDA-Public Use
  Company Number: US-HORIZON-RAV-0116-2016

PATIENT
  Age: 32 Year
  Sex: Male

DRUGS (7)
  1. PERIACTIN [Concomitant]
     Active Substance: CYPROHEPTADINE HYDROCHLORIDE
     Dosage: ONCE WEEKLY
  2. RAVICTI [Suspect]
     Active Substance: GLYCEROL PHENYLBUTYRATE
     Indication: ORNITHINE TRANSCARBAMOYLASE DEFICIENCY
     Dosage: 4 ML TID
     Dates: start: 20130522
  3. VITAMIN B12 [Concomitant]
     Active Substance: CYANOCOBALAMIN
     Indication: SUPPLEMENTATION THERAPY
  4. ARGINAID [Concomitant]
     Dosage: 9 G DAILY
  5. MULTIVITAMIN [Concomitant]
     Active Substance: VITAMINS
     Indication: SUPPLEMENTATION THERAPY
  6. PROPHREE [Concomitant]
     Indication: SUPPLEMENTATION THERAPY
  7. CYCLINEX [Concomitant]
     Indication: SUPPLEMENTATION THERAPY

REACTIONS (4)
  - Decreased appetite [Unknown]
  - Vitamin B12 decreased [Unknown]
  - Amino acid level decreased [Unknown]
  - Drug dose omission [Unknown]

NARRATIVE: CASE EVENT DATE: 201603
